FAERS Safety Report 9005482 (Version 1)
Quarter: 2013Q1

REPORT INFORMATION
  Report Type: Spontaneous
  Country: ES (occurrence: ES)
  Receive Date: 20130109
  Receipt Date: 20130109
  Transmission Date: 20140127
  Serious: Yes (Other)
  Sender: FDA-Public Use
  Company Number: ES-BANPHARM-20120507

PATIENT
  Age: 32 Year
  Sex: Female

DRUGS (3)
  1. IBUPROFEN UNKNOWN PRODUCT [Suspect]
     Dosage: 600 MG, Q12H,
     Dates: start: 2012, end: 2012
  2. IBUPROFEN UNKNOWN PRODUCT [Suspect]
     Dates: start: 2011, end: 2011
  3. PARACETAMOL UNKNOWN PRODUCT [Concomitant]
     Dates: start: 2011, end: 2011

REACTIONS (2)
  - Erythema multiforme [Unknown]
  - Skin reaction [Unknown]
